FAERS Safety Report 9144339 (Version 1)
Quarter: 2013Q1

REPORT INFORMATION
  Report Type: Spontaneous
  Country: US (occurrence: US)
  Receive Date: 20130306
  Receipt Date: 20130306
  Transmission Date: 20140127
  Serious: No
  Sender: FDA-Public Use
  Company Number: US-BAYER-2013-028159

PATIENT
  Age: 83 Year
  Sex: Female
  Weight: 68.03 kg

DRUGS (4)
  1. ALEVE CAPLET/TABLET,MIDOL EXTENDED RELIEF CAPLET [Suspect]
     Indication: BACK PAIN
     Dosage: 2 DF, QD
     Route: 048
     Dates: start: 20130225
  2. 3 BLOOD PRESSURE MEDICINES [Concomitant]
  3. UNSPECIFIED INGREDIENT [Concomitant]
  4. POTASSIUM [POTASSIUM] [Concomitant]

REACTIONS (1)
  - Blood pressure increased [Not Recovered/Not Resolved]
